FAERS Safety Report 12249682 (Version 6)
Quarter: 2017Q2

REPORT INFORMATION
  Report Type: Spontaneous
  Country: US (occurrence: US)
  Receive Date: 20160408
  Receipt Date: 20170504
  Transmission Date: 20170830
  Serious: Yes (Death, Congenital Anomaly, Other)
  Sender: FDA-Public Use
  Company Number: PHEH2016US008186

PATIENT
  Sex: Male

DRUGS (3)
  1. ZOFRAN [Suspect]
     Active Substance: ONDANSETRON HYDROCHLORIDE
     Indication: FOETAL EXPOSURE DURING PREGNANCY
     Route: 064
  2. ZOFRAN [Suspect]
     Active Substance: ONDANSETRON HYDROCHLORIDE
     Indication: FOETAL EXPOSURE DURING PREGNANCY
     Dosage: MOTHER DOSE: 4 MG, UNK
     Route: 064
  3. ZOFRAN ODT [Suspect]
     Active Substance: ONDANSETRON HYDROCHLORIDE
     Indication: FOETAL EXPOSURE DURING PREGNANCY
     Route: 064

REACTIONS (15)
  - Congenital mitral valve incompetence [Unknown]
  - Congenital anomaly [Fatal]
  - Right ventricular dilatation [Unknown]
  - Heart disease congenital [Unknown]
  - Hypoplastic left heart syndrome [Unknown]
  - Right ventricular hypertrophy [Unknown]
  - Right ventricular dysfunction [Unknown]
  - Ascites [Unknown]
  - Injury [Unknown]
  - Congenital tricuspid valve incompetence [Unknown]
  - Congenital pulmonary valve disorder [Unknown]
  - Right atrial dilatation [Unknown]
  - Congenital aortic valve incompetence [Unknown]
  - Hydrops foetalis [Unknown]
  - Foetal exposure during pregnancy [Unknown]
